FAERS Safety Report 14236752 (Version 2)
Quarter: 2017Q4

REPORT INFORMATION
  Report Type: Spontaneous
  Country: CN (occurrence: CN)
  Receive Date: 20171129
  Receipt Date: 20171206
  Transmission Date: 20180321
  Serious: Yes (Other)
  Sender: FDA-Public Use
  Company Number: CN-PFIZER INC-2017506899

PATIENT
  Age: 54 Year
  Sex: Female

DRUGS (4)
  1. METHOTREXATE. [Suspect]
     Active Substance: METHOTREXATE
     Dosage: 400 MG/0.1 ML, WEEKLY
     Route: 050
  2. METHOTREXATE. [Suspect]
     Active Substance: METHOTREXATE
     Indication: OCULAR LYMPHOMA
     Dosage: 400 MG/0.1 ML, 2X/WEEK
     Route: 050
  3. METHOTREXATE. [Suspect]
     Active Substance: METHOTREXATE
     Dosage: 400 MG/0.1 ML, MONTHLY
     Route: 050
  4. METHOTREXATE. [Suspect]
     Active Substance: METHOTREXATE
     Dosage: 5 G/M2, UNK (SYSTEMIC HIGH DOSE)

REACTIONS (3)
  - Corneal disorder [Recovered/Resolved]
  - Ocular toxicity [Recovering/Resolving]
  - Product use issue [Unknown]
